FAERS Safety Report 5562885-5 (Version None)
Quarter: 2007Q4

REPORT INFORMATION
  Report Type: 
  Country: None (occurrence: None)
  Receive Date: 20071217
  Receipt Date: 20071203
  Transmission Date: 20080405
  Serious: Yes (Hospitalization)
  Sender: FDA-Public Use
  Company Number: PL-GENENTECH-252195

PATIENT
  Sex: Male
  Weight: 96 kg

DRUGS (1)
  1. XOLAIR [Suspect]
     Indication: ASTHMA
     Dosage: 300 MG, Q4W
     Route: 058
     Dates: start: 20071023

REACTIONS (4)
  - BRONCHOSTENOSIS [None]
  - ERYTHEMA [None]
  - FLUSHING [None]
  - VOMITING [None]
